FAERS Safety Report 10735478 (Version 9)
Quarter: 2015Q3

REPORT INFORMATION
  Report Type: Spontaneous
  Country: US (occurrence: US)
  Receive Date: 20150126
  Receipt Date: 20150903
  Transmission Date: 20151125
  Serious: No
  Sender: FDA-Public Use
  Company Number: US-009507513-1501USA008042

PATIENT
  Age: 25 Year
  Sex: Female

DRUGS (2)
  1. NEXPLANON [Suspect]
     Active Substance: ETONOGESTREL
     Dosage: UNK
     Route: 059
     Dates: start: 20150120, end: 20150427
  2. IMPLANON [Suspect]
     Active Substance: ETONOGESTREL
     Dosage: 1 ROD ONCE EVERY THREE YEARS
     Route: 059
     Dates: start: 201202, end: 2015

REACTIONS (6)
  - Weight increased [Unknown]
  - Prescribed overdose [Unknown]
  - Device dislocation [Recovered/Resolved]
  - Medical device complication [Recovered/Resolved]
  - Incorrect drug administration duration [Unknown]
  - Expired product administered [Unknown]

NARRATIVE: CASE EVENT DATE: 20150120
